FAERS Safety Report 13821193 (Version 1)
Quarter: 2017Q3

REPORT INFORMATION
  Report Type: Spontaneous
  Country: US (occurrence: US)
  Receive Date: 20170801
  Receipt Date: 20170801
  Transmission Date: 20171127
  Serious: No
  Sender: FDA-Public Use
  Company Number: US-SEBELA IRELAND LIMITED-2016SEB01506

PATIENT
  Age: 64 Year
  Sex: Female

DRUGS (12)
  1. PEXEVA [Suspect]
     Active Substance: PAROXETINE MESYLATE
     Dosage: 40 MG, 1X/DAY
     Dates: start: 2016, end: 2016
  2. LAMICTAL [Concomitant]
     Active Substance: LAMOTRIGINE
     Dosage: 200 MG, 2X/DAY
  3. PEXEVA [Suspect]
     Active Substance: PAROXETINE MESYLATE
     Dosage: 10 MG, UNK
     Dates: start: 2016, end: 2016
  4. LEVOTHRYOXINE [Concomitant]
     Active Substance: LEVOTHYROXINE
     Dosage: 200 ?G, UNK
  5. PEXEVA [Suspect]
     Active Substance: PAROXETINE MESYLATE
     Dosage: 15 UNK, UNK
     Dates: start: 2016, end: 2016
  6. LOSARTAN-HYDROCHLOROTHIAZID [Concomitant]
     Dosage: UNK
  7. AMBIEN [Concomitant]
     Active Substance: ZOLPIDEM TARTRATE
     Dosage: 5 MG, UNK
  8. PEXEVA [Suspect]
     Active Substance: PAROXETINE MESYLATE
     Indication: DEPRESSION
     Dosage: 60 MG, 1X/DAY
     Dates: end: 2016
  9. INTUNIV [Concomitant]
     Active Substance: GUANFACINE HYDROCHLORIDE
     Dosage: 4 MG, UNK
  10. NORVASC [Concomitant]
     Active Substance: AMLODIPINE BESYLATE
     Dosage: 5 MG, UNK
  11. ^ZOLAR^ [Concomitant]
     Dosage: 20 MG, UNK
  12. PEXEVA [Suspect]
     Active Substance: PAROXETINE MESYLATE
     Dosage: 30 MG, 1X/DAY
     Dates: start: 2016, end: 2016

REACTIONS (4)
  - Drug dose omission [Unknown]
  - Tinnitus [Not Recovered/Not Resolved]
  - Anger [Recovered/Resolved]
  - Feeling abnormal [Unknown]
